FAERS Safety Report 21564148 (Version 1)
Quarter: 2022Q4

REPORT INFORMATION
  Report Type: Spontaneous
  Country: GB (occurrence: None)
  Receive Date: 20221108
  Receipt Date: 20221108
  Transmission Date: 20230113
  Serious: Yes (Death)
  Sender: FDA-Public Use
  Company Number: None

PATIENT
  Sex: Female

DRUGS (1)
  1. PIRFENIDONE [Suspect]
     Active Substance: PIRFENIDONE
     Indication: Product used for unknown indication
     Dosage: 9 TABLETS DAILY, THEN DOSE REDUCED TO 6 TABLETS DAILY
     Route: 050
     Dates: start: 202207

REACTIONS (2)
  - Malaise [Unknown]
  - Death [Fatal]

NARRATIVE: CASE EVENT DATE: 20221016
